FAERS Safety Report 9482462 (Version 1)
Quarter: 2013Q3

REPORT INFORMATION
  Report Type: Spontaneous
  Country: CA (occurrence: None)
  Receive Date: 20130822
  Receipt Date: 20130822
  Transmission Date: 20140515
  Serious: Yes (Other)
  Sender: FDA-Public Use
  Company Number: 2013AP007346

PATIENT
  Age: 81 Year
  Sex: Female

DRUGS (2)
  1. APO-ALENDRONATE [Suspect]
     Dosage: 70MG;TAB;PO;QW
     Route: 048
  2. PREDNISONE (PREDNISONE) [Concomitant]

REACTIONS (2)
  - Chest pain [None]
  - Skin discolouration [None]
